APPROVED DRUG PRODUCT: LEVETIRACETAM
Active Ingredient: LEVETIRACETAM
Strength: 750MG
Dosage Form/Route: TABLET, EXTENDED RELEASE;ORAL
Application: A202167 | Product #002
Applicant: ADAPTIS PHARMA PRIVATE LTD
Approved: Sep 4, 2015 | RLD: No | RS: No | Type: DISCN